FAERS Safety Report 6960178-2 (Version None)
Quarter: 2010Q3

REPORT INFORMATION
  Report Type: 
  Country: None (occurrence: None)
  Receive Date: 20100901
  Receipt Date: 20100823
  Transmission Date: 20110219
  Serious: Yes (Hospitalization)
  Sender: FDA-Public Use
  Company Number: FR-ASTRAZENECA-2010SE39472

PATIENT
  Age: 37 Year
  Sex: Female

DRUGS (3)
  1. XYLOCAINE [Suspect]
     Indication: ABORTION INDUCED
     Route: 008
     Dates: start: 20081002
  2. ROPIVACAINE MONOHYDRATE [Suspect]
     Indication: ABORTION INDUCED
     Route: 008
     Dates: start: 20081002
  3. SUFENTANYL [Suspect]
     Indication: ABORTION INDUCED
     Route: 008
     Dates: start: 20081002

REACTIONS (3)
  - HYPOAESTHESIA [None]
  - LOCALISED OEDEMA [None]
  - PAIN [None]
